FAERS Safety Report 9601012 (Version 2)
Quarter: 2013Q4

REPORT INFORMATION
  Report Type: Spontaneous
  Country: US (occurrence: US)
  Receive Date: 20131004
  Receipt Date: 20131004
  Transmission Date: 20140711
  Serious: No
  Sender: FDA-Public Use
  Company Number: US-AMGEN-USASP2013033113

PATIENT
  Age: 43 Year
  Sex: Female

DRUGS (10)
  1. ENBREL [Suspect]
     Indication: PRODUCT USED FOR UNKNOWN INDICATION
     Dosage: 50 MG, QWK
     Route: 058
  2. METHOTREXATE [Concomitant]
     Dosage: 50 MG, 50MG/2ML
     Route: 058
  3. PREDNISONE [Concomitant]
     Dosage: 10 MG, UNK
     Route: 048
  4. NUCYNTA [Concomitant]
     Dosage: 100 MG, UNK
     Route: 048
  5. FOLIC ACID [Concomitant]
     Dosage: UNK
     Route: 048
  6. VITAMIN B [Concomitant]
     Dosage: UNK
  7. B COMPLEX                          /00212701/ [Concomitant]
     Dosage: UNK
     Route: 048
  8. VITAMIN C                          /00008001/ [Concomitant]
     Dosage: 500 MG, UNK
     Route: 048
  9. NEXIUM                             /01479302/ [Concomitant]
     Dosage: 20 MG, UNK
     Route: 048
  10. FISH OIL [Concomitant]
     Dosage: UNK
     Route: 048

REACTIONS (3)
  - Bronchitis [Unknown]
  - Nasopharyngitis [Unknown]
  - Upper respiratory tract infection [Unknown]
